FAERS Safety Report 7316107-5 (Version None)
Quarter: 2011Q1

REPORT INFORMATION
  Report Type: 
  Country: None (occurrence: None)
  Receive Date: 20110225
  Receipt Date: 20110221
  Transmission Date: 20110831
  Serious: Yes (Life-Threatening, Hospitalization)
  Sender: FDA-Public Use
  Company Number: DK-JNJFOC-20110204198

PATIENT
  Sex: Female
  Weight: 55 kg

DRUGS (2)
  1. SIMPONI [Suspect]
     Indication: ANKYLOSING SPONDYLITIS
     Route: 058
  2. METHOTREXATE [Concomitant]

REACTIONS (4)
  - H1N1 INFLUENZA [None]
  - CANDIDA SEPSIS [None]
  - RESPIRATORY FAILURE [None]
  - PNEUMOCOCCAL INFECTION [None]
